FAERS Safety Report 9361405 (Version 1)
Quarter: 2013Q2

REPORT INFORMATION
  Report Type: Report from Study
  Country: US (occurrence: US)
  Receive Date: 20130621
  Receipt Date: 20130621
  Transmission Date: 20140414
  Serious: Yes (Hospitalization)
  Sender: FDA-Public Use
  Company Number: US-ABBOTT-13P-163-1096613-00

PATIENT
  Age: 68 Year
  Sex: Male
  Weight: 95.34 kg

DRUGS (6)
  1. HUMIRA [Suspect]
     Indication: COLITIS ULCERATIVE
     Route: 058
     Dates: start: 20090612, end: 20130522
  2. MESALAZINE [Concomitant]
     Indication: COLITIS ULCERATIVE
     Dates: start: 200401
  3. FLUDROXYCORTIDE [Concomitant]
     Indication: DERMATITIS
     Dates: start: 20090120
  4. METOPROLOL [Concomitant]
     Indication: CARDIOVASCULAR EVENT PROPHYLAXIS
     Dates: start: 2007
  5. NITROGLYCERIN [Concomitant]
     Indication: CHEST PAIN
     Dates: start: 2007
  6. ATORVASTATIN CALCIUM [Concomitant]
     Indication: PRODUCT USED FOR UNKNOWN INDICATION
     Dates: start: 20120611

REACTIONS (1)
  - Systemic inflammatory response syndrome [Recovered/Resolved]
